FAERS Safety Report 16049646 (Version 2)
Quarter: 2019Q3

REPORT INFORMATION
  Report Type: Report from Study
  Country: JP (occurrence: JP)
  Receive Date: 20190307
  Receipt Date: 20190722
  Transmission Date: 20191004
  Serious: Yes (Death)
  Sender: FDA-Public Use
  Company Number: JP-BAUSCH-BL-2019-006955

PATIENT
  Age: 48 Year
  Sex: Female
  Weight: 42 kg

DRUGS (41)
  1. CHOREAZINE [Suspect]
     Active Substance: TETRABENAZINE
     Route: 048
     Dates: start: 20150107, end: 20150806
  2. CHOREAZINE [Suspect]
     Active Substance: TETRABENAZINE
     Route: 048
     Dates: start: 20150814, end: 20150820
  3. CHOREAZINE [Suspect]
     Active Substance: TETRABENAZINE
     Indication: HUNTINGTON^S DISEASE
     Route: 048
     Dates: start: 20140530, end: 20140703
  4. FLUNITRAZEPAM [Concomitant]
     Active Substance: FLUNITRAZEPAM
     Route: 048
     Dates: start: 20150605, end: 20150730
  5. MAGMITT [Concomitant]
     Active Substance: MAGNESIUM OXIDE
     Indication: CONSTIPATION
     Route: 048
     Dates: start: 20130816, end: 20150731
  6. MINOMYCIN [Concomitant]
     Active Substance: MINOCYCLINE HYDROCHLORIDE
     Route: 048
     Dates: start: 20141113, end: 20141120
  7. NEOLAMIN 3B [Concomitant]
     Indication: PRODUCT USED FOR UNKNOWN INDICATION
     Dosage: ONE APPLICATION PER DAY
     Route: 065
     Dates: start: 20150529, end: 20150601
  8. CHOREAZINE [Suspect]
     Active Substance: TETRABENAZINE
     Route: 048
     Dates: start: 20150828, end: 20150903
  9. CHOREAZINE [Suspect]
     Active Substance: TETRABENAZINE
     Route: 048
     Dates: start: 20150904, end: 20150910
  10. UBRETID [Concomitant]
     Active Substance: DISTIGMINE BROMIDE
     Indication: PRODUCT USED FOR UNKNOWN INDICATION
     Route: 048
     Dates: start: 20150716
  11. HALRACK [Concomitant]
     Active Substance: TRIAZOLAM
     Route: 048
     Dates: start: 20150717, end: 20150813
  12. AMBROXOL HYDROCHLORIDE [Concomitant]
     Active Substance: AMBROXOL HYDROCHLORIDE
     Indication: PRODUCTIVE COUGH
     Route: 048
     Dates: start: 20150513, end: 20150730
  13. AMIGRAND [Concomitant]
     Route: 065
     Dates: start: 20150530, end: 20150601
  14. CHOREAZINE [Suspect]
     Active Substance: TETRABENAZINE
     Route: 048
     Dates: start: 20150807, end: 20150813
  15. CHOREAZINE [Suspect]
     Active Substance: TETRABENAZINE
     Route: 048
     Dates: start: 20140704, end: 20140825
  16. CHOREAZINE [Suspect]
     Active Substance: TETRABENAZINE
     Route: 048
     Dates: start: 20141003, end: 20141009
  17. CHOREAZINE [Suspect]
     Active Substance: TETRABENAZINE
     Route: 048
     Dates: start: 20150821, end: 20150827
  18. CHOREAZINE [Suspect]
     Active Substance: TETRABENAZINE
     Route: 048
     Dates: start: 20150911, end: 20150917
  19. RISPERDAL [Concomitant]
     Active Substance: RISPERIDONE
     Indication: PRODUCT USED FOR UNKNOWN INDICATION
     Route: 048
     Dates: start: 20150618
  20. DEPAKENE-R [Concomitant]
     Active Substance: VALPROATE SODIUM
     Indication: PRODUCT USED FOR UNKNOWN INDICATION
     Route: 048
     Dates: start: 20130816, end: 20150716
  21. HALRACK [Concomitant]
     Active Substance: TRIAZOLAM
     Route: 048
     Dates: start: 20150814, end: 20150827
  22. HALRACK [Concomitant]
     Active Substance: TRIAZOLAM
     Route: 048
     Dates: start: 20150828, end: 20150917
  23. MINOCYCLINE HYDROCHLORIDE. [Concomitant]
     Active Substance: MINOCYCLINE HYDROCHLORIDE
     Indication: FOLLICULITIS
     Route: 048
     Dates: start: 20141121, end: 20141201
  24. RISPERIDONE OD [Concomitant]
     Indication: PRODUCT USED FOR UNKNOWN INDICATION
     Route: 048
     Dates: start: 20150116, end: 20150618
  25. CHOREAZINE [Suspect]
     Active Substance: TETRABENAZINE
     Route: 048
     Dates: start: 20141219, end: 20150106
  26. FLUNITRAZEPAM [Concomitant]
     Active Substance: FLUNITRAZEPAM
     Indication: PRODUCT USED FOR UNKNOWN INDICATION
     Route: 048
     Dates: start: 20150604
  27. HALRACK [Concomitant]
     Active Substance: TRIAZOLAM
     Indication: PRODUCT USED FOR UNKNOWN INDICATION
     Route: 048
     Dates: start: 20130816, end: 20150716
  28. AMIGRAND [Concomitant]
     Indication: PNEUMONIA ASPIRATION
     Route: 065
     Dates: start: 20150529, end: 20150529
  29. CHOREAZINE [Suspect]
     Active Substance: TETRABENAZINE
     Route: 048
     Dates: start: 20140926, end: 20141002
  30. CHOREAZINE [Suspect]
     Active Substance: TETRABENAZINE
     Route: 048
     Dates: start: 20141010, end: 20141218
  31. DEPAKENE-R [Concomitant]
     Active Substance: VALPROATE SODIUM
     Route: 048
     Dates: start: 20150717, end: 20150730
  32. DEPAKENE-R [Concomitant]
     Active Substance: VALPROATE SODIUM
     Route: 048
     Dates: start: 20150731, end: 20150806
  33. ROZEREM [Concomitant]
     Active Substance: RAMELTEON
     Indication: PRODUCT USED FOR UNKNOWN INDICATION
     Route: 048
     Dates: start: 20130816, end: 20150917
  34. MINOMYCIN [Concomitant]
     Active Substance: MINOCYCLINE HYDROCHLORIDE
     Indication: ACNE
     Route: 048
     Dates: start: 20140704, end: 20140710
  35. UNASYN [Concomitant]
     Active Substance: AMPICILLIN SODIUM\SULBACTAM SODIUM
     Indication: PNEUMONIA ASPIRATION
     Route: 065
     Dates: start: 20150529, end: 20150610
  36. SOLDEM 3A [Concomitant]
     Active Substance: CARBOHYDRATES\POTASSIUM CHLORIDE\SODIUM CHLORIDE\SODIUM LACTATE
     Indication: PNEUMONIA ASPIRATION
     Route: 065
     Dates: start: 20150529, end: 20150601
  37. CHOREAZINE [Suspect]
     Active Substance: TETRABENAZINE
     Route: 048
     Dates: start: 20140826, end: 20140925
  38. UBRETID [Concomitant]
     Active Substance: DISTIGMINE BROMIDE
     Route: 048
     Dates: start: 20150717, end: 20150730
  39. RISPERIDONE OD [Concomitant]
     Route: 048
     Dates: start: 20150619, end: 20150716
  40. RISPERIDONE OD [Concomitant]
     Route: 048
     Dates: start: 20150717, end: 20150730
  41. VITACIMIN [Concomitant]
     Indication: PRODUCT USED FOR UNKNOWN INDICATION
     Route: 065
     Dates: start: 20150529, end: 20150601

REACTIONS (8)
  - Dysphagia [Fatal]
  - Pyrexia [Recovered/Resolved]
  - Pneumonia aspiration [Recovered/Resolved]
  - Hypotension [Fatal]
  - Acne [Recovered/Resolved]
  - Folliculitis [Recovered/Resolved]
  - Pyrexia [Recovered/Resolved]
  - Productive cough [Not Recovered/Not Resolved]

NARRATIVE: CASE EVENT DATE: 20140703
